FAERS Safety Report 6579538-7 (Version None)
Quarter: 2010Q1

REPORT INFORMATION
  Report Type: 
  Country: None (occurrence: None)
  Receive Date: 20100212
  Receipt Date: 20100208
  Transmission Date: 20100710
  Serious: Yes (Hospitalization, Other)
  Sender: FDA-Public Use
  Company Number: US-PFIZER INC-2010016901

PATIENT
  Sex: Female
  Weight: 56.7 kg

DRUGS (2)
  1. MEDROL [Suspect]
     Indication: ADRENAL DISORDER
     Dosage: 2 MG, 1X/DAY
     Dates: start: 20070101
  2. THYROID TAB [Concomitant]
     Indication: HYPOTHYROIDISM
     Dosage: UNK

REACTIONS (6)
  - ABDOMINAL DISCOMFORT [None]
  - BLOOD CORTISOL INCREASED [None]
  - HYPOTHYROIDISM [None]
  - PALPITATIONS [None]
  - VERTIGO [None]
  - WEIGHT INCREASED [None]
